FAERS Safety Report 17061952 (Version 2)
Quarter: 2019Q4

REPORT INFORMATION
  Report Type: Spontaneous
  Country: JP (occurrence: JP)
  Receive Date: 20191121
  Receipt Date: 20191218
  Transmission Date: 20200122
  Serious: Yes (Death)
  Sender: FDA-Public Use
  Company Number: JP-B.I. PHARMACEUTICALS,INC./RIDGEFIELD-2019-NB-115417

PATIENT
  Age: 62 Year
  Sex: Male

DRUGS (2)
  1. MEYLON [Suspect]
     Active Substance: SODIUM BICARBONATE
     Indication: SCAN WITH CONTRAST
     Route: 042
     Dates: end: 20190617
  2. PRIZBIND [Suspect]
     Active Substance: IDARUCIZUMAB
     Indication: PROCOAGULANT THERAPY
     Route: 042
     Dates: end: 20190618

REACTIONS (1)
  - Pulmonary haemorrhage [Fatal]

NARRATIVE: CASE EVENT DATE: 20190617
